FAERS Safety Report 10376878 (Version 2)
Quarter: 2014Q3

REPORT INFORMATION
  Report Type: Spontaneous
  Country: US (occurrence: US)
  Receive Date: 20140811
  Receipt Date: 20140811
  Transmission Date: 20150326
  Serious: Yes (Hospitalization, Disabling)
  Sender: FDA-Public Use
  Company Number: US-009507513-2009SP035409

PATIENT
  Sex: Female
  Weight: 72.58 kg

DRUGS (2)
  1. NUVARING [Suspect]
     Active Substance: ETHINYL ESTRADIOL\ETONOGESTREL
     Indication: CONTRACEPTION
     Dosage: UNK
     Route: 067
     Dates: start: 200705, end: 200711
  2. LEVOTHYROXINE SODIUM. [Concomitant]
     Active Substance: LEVOTHYROXINE SODIUM
     Indication: HYPOTHYROIDISM
     Dosage: DOSE AS REPORTED
     Dates: start: 1994

REACTIONS (2)
  - Deep vein thrombosis [Recovered/Resolved]
  - Hypercoagulation [Recovered/Resolved]

NARRATIVE: CASE EVENT DATE: 200711
